FAERS Safety Report 8522044-0 (Version None)
Quarter: 2012Q3

REPORT INFORMATION
  Report Type: 
  Country: None (occurrence: None)
  Receive Date: 20120719
  Receipt Date: 20120710
  Transmission Date: 20120928
  Serious: Yes (Other)
  Sender: FDA-Public Use
  Company Number: US-ASTRAZENECA-2012SE47331

PATIENT
  Age: 76 Year
  Sex: Female

DRUGS (12)
  1. SINGULAIR [Concomitant]
  2. DIGOXIN [Concomitant]
  3. LASIX [Concomitant]
  4. METFORMIN HYDROCHLORIDE [Concomitant]
  5. ZANTAC [Concomitant]
  6. CARDIZEM CD [Concomitant]
  7. POTASSIUM CHLORIDE [Concomitant]
     Route: 048
  8. ZOCOR [Concomitant]
  9. FOSAMAX [Concomitant]
  10. DISTOLIC [Concomitant]
  11. WARFARIN SODIUM [Concomitant]
  12. SYMBICORT [Suspect]
     Dosage: 160 BID
     Route: 055
     Dates: start: 20111201

REACTIONS (4)
  - DEMENTIA [None]
  - FALL [None]
  - CONFUSIONAL STATE [None]
  - DRUG DOSE OMISSION [None]
